FAERS Safety Report 23761538 (Version 1)
Quarter: 2024Q2

REPORT INFORMATION
  Report Type: Spontaneous
  Country: CN (occurrence: None)
  Receive Date: 20240419
  Receipt Date: 20240419
  Transmission Date: 20240716
  Serious: Yes (Other)
  Sender: FDA-Public Use
  Company Number: CN-ROCHE-3380127

PATIENT
  Age: 45 Year
  Sex: Female

DRUGS (21)
  1. POLIVY [Suspect]
     Active Substance: POLATUZUMAB VEDOTIN-PIIQ
     Indication: Diffuse large B-cell lymphoma
     Route: 065
     Dates: start: 20230526, end: 20230531
  2. POLIVY [Suspect]
     Active Substance: POLATUZUMAB VEDOTIN-PIIQ
     Route: 065
     Dates: start: 20230624
  3. MABTHERA [Suspect]
     Active Substance: RITUXIMAB
     Indication: Diffuse large B-cell lymphoma
     Dosage: R-CHP
     Route: 065
     Dates: start: 2022
  4. MABTHERA [Suspect]
     Active Substance: RITUXIMAB
     Dosage: R-GEMOX
     Route: 065
     Dates: start: 202211
  5. MABTHERA [Suspect]
     Active Substance: RITUXIMAB
     Dosage: D1
     Route: 065
     Dates: start: 20230526
  6. MABTHERA [Suspect]
     Active Substance: RITUXIMAB
     Dosage: D0
     Route: 065
     Dates: start: 202307
  7. MABTHERA [Suspect]
     Active Substance: RITUXIMAB
     Dosage: D0
     Route: 065
     Dates: start: 202308
  8. MABTHERA [Suspect]
     Active Substance: RITUXIMAB
     Dosage: D0
     Route: 065
     Dates: start: 202310
  9. MABTHERA [Suspect]
     Active Substance: RITUXIMAB
     Route: 065
     Dates: start: 202401
  10. CYCLOPHOSPHAMIDE [Concomitant]
     Active Substance: CYCLOPHOSPHAMIDE
  11. MITOXANTRONE [Concomitant]
     Active Substance: MITOXANTRONE HYDROCHLORIDE
  12. DEXAMETHASONE [Concomitant]
     Active Substance: DEXAMETHASONE
  13. ZANUBRUTINIB [Concomitant]
     Active Substance: ZANUBRUTINIB
  14. MITOXANTRONE [Concomitant]
     Active Substance: MITOXANTRONE HYDROCHLORIDE
  15. BENDAMUSTINE [Concomitant]
     Active Substance: BENDAMUSTINE
  16. ETOPOSIDE [Concomitant]
     Active Substance: ETOPOSIDE
  17. CYTARABINE [Concomitant]
     Active Substance: CYTARABINE
  18. GEMCITABINE [Concomitant]
     Active Substance: GEMCITABINE
  19. OXALIPLATIN [Concomitant]
     Active Substance: OXALIPLATIN
  20. PREDNISONE [Concomitant]
     Active Substance: PREDNISONE
  21. EPIRUBICIN [Concomitant]
     Active Substance: EPIRUBICIN

REACTIONS (3)
  - Myelosuppression [Unknown]
  - Jaundice cholestatic [Unknown]
  - Febrile neutropenia [Unknown]

NARRATIVE: CASE EVENT DATE: 20230101
